FAERS Safety Report 24921759 (Version 1)
Quarter: 2025Q1

REPORT INFORMATION
  Report Type: Spontaneous
  Country: US (occurrence: US)
  Receive Date: 20250204
  Receipt Date: 20250204
  Transmission Date: 20250409
  Serious: Yes (Hospitalization)
  Sender: UNITED THERAPEUTICS
  Company Number: US-UNITED THERAPEUTICS-UNT-2024-018650

PATIENT
  Sex: Female

DRUGS (16)
  1. REMODULIN [Suspect]
     Active Substance: TREPROSTINIL
     Indication: Pulmonary arterial hypertension
     Route: 041
  2. REMODULIN [Suspect]
     Active Substance: TREPROSTINIL
     Route: 041
  3. REMODULIN [Suspect]
     Active Substance: TREPROSTINIL
     Route: 041
  4. REMODULIN [Suspect]
     Active Substance: TREPROSTINIL
     Route: 041
  5. REMODULIN [Suspect]
     Active Substance: TREPROSTINIL
     Route: 041
  6. REMODULIN [Suspect]
     Active Substance: TREPROSTINIL
     Route: 041
  7. REMODULIN [Suspect]
     Active Substance: TREPROSTINIL
     Indication: Pulmonary arterial hypertension
     Route: 041
  8. REMODULIN [Suspect]
     Active Substance: TREPROSTINIL
     Route: 041
  9. REMODULIN [Suspect]
     Active Substance: TREPROSTINIL
     Route: 041
  10. REMODULIN [Suspect]
     Active Substance: TREPROSTINIL
     Route: 041
  11. COMPAZINE [Suspect]
     Active Substance: PROCHLORPERAZINE MALEATE
     Indication: Nausea
  12. ZOFRAN [Suspect]
     Active Substance: ONDANSETRON HYDROCHLORIDE
     Indication: Nausea
  13. MACITENTAN\TADALAFIL [Suspect]
     Active Substance: MACITENTAN\TADALAFIL
     Indication: Product used for unknown indication
  14. SILDENAFIL [Concomitant]
     Active Substance: SILDENAFIL
     Indication: Product used for unknown indication
  15. OPSUMIT [Concomitant]
     Active Substance: MACITENTAN
     Indication: Pulmonary arterial hypertension
  16. SOTATERCEPT [Concomitant]
     Active Substance: SOTATERCEPT
     Indication: Product used for unknown indication

REACTIONS (20)
  - Weight decreased [Recovering/Resolving]
  - Decreased appetite [Recovering/Resolving]
  - Incorrect dose administered [Unknown]
  - Product communication issue [Unknown]
  - Fluid retention [Unknown]
  - Nausea [Unknown]
  - Vomiting [Recovered/Resolved]
  - Arthralgia [Not Recovered/Not Resolved]
  - Product use issue [Unknown]
  - Retching [Unknown]
  - Drug ineffective [Unknown]
  - Hypotension [Unknown]
  - Therapy partial responder [Unknown]
  - Skin irritation [Recovering/Resolving]
  - Rash [Recovered/Resolved]
  - Pruritus [Recovering/Resolving]
  - Peripheral swelling [Unknown]
  - Fatigue [Unknown]
  - Pain in extremity [Unknown]
  - Weight fluctuation [Unknown]

NARRATIVE: CASE EVENT DATE: 20240101
